FAERS Safety Report 6987605-9 (Version None)
Quarter: 2010Q3

REPORT INFORMATION
  Report Type: 
  Country: None (occurrence: None)
  Receive Date: 20100913
  Receipt Date: 20100901
  Transmission Date: 20110219
  Serious: Yes (Disabling)
  Sender: FDA-Public Use
  Company Number: ALD1-JP-2010-0048

PATIENT
  Age: 70 Year
  Sex: Female

DRUGS (1)
  1. ALDOMET [Suspect]
     Indication: HYPERTENSION
     Dosage: 750 MG, ORAL
     Route: 048
     Dates: start: 20100728, end: 20100810

REACTIONS (2)
  - PLATELET COUNT DECREASED [None]
  - PYREXIA [None]
